FAERS Safety Report 4983525-X (Version None)
Quarter: 2006Q2

REPORT INFORMATION
  Report Type: 
  Country: None (occurrence: None)
  Receive Date: 20060419
  Receipt Date: 20060410
  Transmission Date: 20061013
  Serious: Yes (Life-Threatening, Hospitalization)
  Sender: FDA-Public Use
  Company Number: 2006049802

PATIENT
  Age: 25 Year
  Sex: Female

DRUGS (1)
  1. PREPIDIL [Suspect]
     Indication: ILL-DEFINED DISORDER
     Dosage: SINGLE, ADMINISTRATION, VAGINAL
     Route: 067
     Dates: start: 20060130, end: 20060130

REACTIONS (4)
  - BLOOD FIBRINOGEN INCREASED [None]
  - DISSEMINATED INTRAVASCULAR COAGULATION [None]
  - HAEMATOCRIT DECREASED [None]
  - HAEMOGLOBIN DECREASED [None]
